FAERS Safety Report 8905221 (Version 1)
Quarter: 2012Q4

REPORT INFORMATION
  Report Type: 
  Country: CA (occurrence: CA)
  Receive Date: 20121111
  Receipt Date: 20121111
  Transmission Date: 20130627
  Serious: Yes (Hospitalization, Other)
  Sender: FDA-Public Use
  Company Number: PHMT2006CA00765

PATIENT
  Age: 54 Year
  Sex: Female

DRUGS (8)
  1. SANDOSTATIN LAR [Suspect]
     Indication: CARCINOID TUMOUR
     Dosage: 40 mg, 2 weeks
     Route: 058
     Dates: start: 19990901
  2. SANDOSTATIN LAR [Suspect]
     Dosage: 60 mg,  every 2 weeks
     Route: 058
     Dates: start: 20060209
  3. SANDOSTATIN [Suspect]
     Indication: CARCINOID TUMOUR
  4. CHLORPROMAZINE [Concomitant]
  5. VITAMINS [Concomitant]
  6. WARFARIN [Concomitant]
  7. ZOFRAN [Concomitant]
  8. RANITIDINE [Concomitant]

REACTIONS (33)
  - Flushing [Recovered/Resolved]
  - Swollen tongue [Unknown]
  - Oedema mouth [Unknown]
  - Ear disorder [Unknown]
  - Skin exfoliation [Unknown]
  - Device failure [Unknown]
  - Incoherent [Unknown]
  - Anxiety [Recovered/Resolved]
  - Nausea [Unknown]
  - Dyspnoea [Unknown]
  - Heart rate increased [Unknown]
  - Pain [Unknown]
  - Hypotension [Unknown]
  - Weight increased [Unknown]
  - Fatigue [Unknown]
  - Hypoglycaemia [Unknown]
  - Dry skin [Unknown]
  - Lacrimation increased [Unknown]
  - Tremor [Unknown]
  - Platelet count decreased [Unknown]
  - Contusion [Unknown]
  - Musculoskeletal stiffness [Unknown]
  - Feeling cold [Unknown]
  - Oral herpes [Unknown]
  - Decreased appetite [Unknown]
  - Hyperglycaemia [Unknown]
  - Pallor [Unknown]
  - Palpitations [None]
  - Tinnitus [None]
  - Needle issue [None]
  - Tremor [None]
  - Nervousness [None]
  - Erythema [None]
